FAERS Safety Report 18125091 (Version 1)
Quarter: 2020Q3

REPORT INFORMATION
  Report Type: Spontaneous
  Country: JP (occurrence: JP)
  Receive Date: 20200807
  Receipt Date: 20200807
  Transmission Date: 20201103
  Serious: Yes (Other)
  Sender: FDA-Public Use
  Company Number: JP-PFIZER INC-2020296832

PATIENT

DRUGS (2)
  1. CABASER [Suspect]
     Active Substance: CABERGOLINE
     Dosage: UNK
     Route: 048
  2. CLOMID [Concomitant]
     Active Substance: CLOMIPHENE CITRATE
     Dosage: 50 MG
     Route: 048

REACTIONS (1)
  - Macular degeneration [Unknown]
